FAERS Safety Report 14757508 (Version 1)
Quarter: 2018Q2

REPORT INFORMATION
  Report Type: Spontaneous
  Country: US (occurrence: US)
  Receive Date: 20180413
  Receipt Date: 20180413
  Transmission Date: 20180711
  Serious: No
  Sender: FDA-Public Use
  Company Number: US-ASTRAZENECA-2018SE33379

PATIENT
  Age: 539 Month
  Sex: Female

DRUGS (1)
  1. SYMBICORT [Suspect]
     Active Substance: BUDESONIDE\FORMOTEROL FUMARATE DIHYDRATE
     Indication: CHEST DISCOMFORT
     Dosage: 160/4.5 MCG, TWO PUFFS, DAILY
     Route: 055
     Dates: start: 201703

REACTIONS (6)
  - Chest discomfort [Not Recovered/Not Resolved]
  - Off label use [Unknown]
  - Product quality issue [Unknown]
  - Dyspnoea [Not Recovered/Not Resolved]
  - Product storage error [Unknown]
  - Product use issue [Unknown]

NARRATIVE: CASE EVENT DATE: 201703
